FAERS Safety Report 9698095 (Version 2)
Quarter: 2013Q4

REPORT INFORMATION
  Report Type: Report from Study
  Country: JP (occurrence: JP)
  Receive Date: 20131120
  Receipt Date: 20131220
  Transmission Date: 20140711
  Serious: Yes (Death)
  Sender: FDA-Public Use
  Company Number: JP-SA-2013SA119695

PATIENT
  Sex: 0

DRUGS (5)
  1. OXALIPLATIN [Suspect]
     Indication: COLORECTAL CANCER METASTATIC
     Dosage: ON DAY 1 OF EACH 2-WEEK CYCLE (2 H)
     Route: 042
  2. FLUOROURACIL [Suspect]
     Indication: COLORECTAL CANCER METASTATIC
     Dosage: BOLUS : ON DAY 1 OF EACH 2-WEEK CYCLE
     Route: 065
  3. FLUOROURACIL [Suspect]
     Indication: COLORECTAL CANCER METASTATIC
     Dosage: INFUSION (46 H) DELIVERED WITH AN INFUSION PUMP
     Route: 065
  4. BEVACIZUMAB [Suspect]
     Indication: COLORECTAL CANCER METASTATIC
     Dosage: ON DAY 1 OF EACH 2-WEEK CYCLE (30-90 MIN)
     Route: 042
  5. LEUCOVORIN [Suspect]
     Indication: COLORECTAL CANCER METASTATIC
     Dosage: ON DAY 1 OF EACH 2-WEEK CYCLE (2 H)
     Route: 065

REACTIONS (1)
  - Death [Fatal]
